FAERS Safety Report 12338303 (Version 2)
Quarter: 2016Q2

REPORT INFORMATION
  Report Type: Report from Study
  Country: US (occurrence: US)
  Receive Date: 20160505
  Receipt Date: 20160517
  Transmission Date: 20160815
  Serious: Yes (Other)
  Sender: FDA-Public Use
  Company Number: US-BAYER-2016-081886

PATIENT
  Age: 85 Year
  Sex: Male

DRUGS (1)
  1. STIVARGA [Suspect]
     Active Substance: REGORAFENIB
     Indication: COLON CANCER
     Dosage: 160 MG DAILY (AT FREQUENCY BID)
     Route: 048
     Dates: start: 20160421, end: 20160427

REACTIONS (6)
  - Oropharyngeal pain [None]
  - Dysphonia [None]
  - Paraesthesia [None]
  - Gait disturbance [None]
  - Headache [None]
  - Pain in extremity [None]
